FAERS Safety Report 6632431-3 (Version None)
Quarter: 2010Q1

REPORT INFORMATION
  Report Type: 
  Country: None (occurrence: None)
  Receive Date: 20100312
  Receipt Date: 20090729
  Transmission Date: 20100710
  Serious: Yes (Hospitalization)
  Sender: FDA-Public Use
  Company Number: 2009BI007051

PATIENT
  Age: 49 Year
  Sex: Female

DRUGS (3)
  1. AVONEX [Suspect]
     Indication: MULTIPLE SCLEROSIS
     Route: 030
     Dates: start: 20010524
  2. AVONEX [Suspect]
     Route: 030
  3. AVONEX [Suspect]
     Route: 030
     Dates: start: 20090121, end: 20090501

REACTIONS (3)
  - HYPOAESTHESIA [None]
  - MIGRAINE [None]
  - MULTIPLE SCLEROSIS [None]
